FAERS Safety Report 10593062 (Version 1)
Quarter: 2014Q4

REPORT INFORMATION
  Report Type: Spontaneous
  Country: US (occurrence: US)
  Receive Date: 20141119
  Receipt Date: 20141119
  Transmission Date: 20150529
  Serious: No
  Sender: FDA-Public Use
  Company Number: US-EISAI MEDICAL RESEARCH-EC-2014-001675

PATIENT
  Age: 57 Year
  Sex: Male

DRUGS (3)
  1. FYCOMPA [Suspect]
     Active Substance: PERAMPANEL
     Indication: PARTIAL SEIZURES
     Route: 048
     Dates: start: 2014
  2. TRILEPTAL [Suspect]
     Active Substance: OXCARBAZEPINE
     Dosage: REDUCED DOSE (UNSPECIFIED)
     Route: 048
     Dates: start: 2014
  3. TRILEPTAL [Suspect]
     Active Substance: OXCARBAZEPINE
     Indication: PARTIAL SEIZURES
     Dosage: UNKNOWN
     Route: 048
     Dates: end: 2014

REACTIONS (1)
  - Dizziness [Unknown]
